FAERS Safety Report 25438093 (Version 1)
Quarter: 2025Q2

REPORT INFORMATION
  Report Type: Spontaneous
  Country: JP (occurrence: JP)
  Receive Date: 20250616
  Receipt Date: 20250616
  Transmission Date: 20250716
  Serious: Yes (Other)
  Sender: ENDO
  Company Number: JP-ENDO USA, INC.-2025-001425

PATIENT

DRUGS (3)
  1. MIDAZOLAM HYDROCHLORIDE [Suspect]
     Active Substance: MIDAZOLAM HYDROCHLORIDE
     Indication: Sedative therapy
     Route: 041
  2. MIDAZOLAM HYDROCHLORIDE [Suspect]
     Active Substance: MIDAZOLAM HYDROCHLORIDE
     Route: 040
  3. PENTAZOCINE [Suspect]
     Active Substance: PENTAZOCINE
     Indication: Pain
     Route: 042

REACTIONS (1)
  - Post procedural pneumonia [Unknown]
